FAERS Safety Report 10636715 (Version 1)
Quarter: 2014Q4

REPORT INFORMATION
  Report Type: Spontaneous
  Country: US (occurrence: None)
  Receive Date: 20141203
  Receipt Date: 20141203
  Transmission Date: 20150529
  Serious: Yes (Hospitalization)
  Sender: FDA-Public Use
  Company Number: None

PATIENT
  Age: 78 Year
  Sex: Female
  Weight: 57 kg

DRUGS (3)
  1. MULTIVITAMIN [Concomitant]
     Active Substance: VITAMINS
  2. IBUPROFEN. [Concomitant]
     Active Substance: IBUPROFEN
  3. AMOXICILLIN. [Suspect]
     Active Substance: AMOXICILLIN
     Indication: ANTIBIOTIC PROPHYLAXIS
     Dosage: 1 CAPSULE  TID ORAL
     Route: 048
     Dates: start: 20141101, end: 20141107

REACTIONS (13)
  - Swollen tongue [None]
  - Flushing [None]
  - Decreased appetite [None]
  - Swelling face [None]
  - Body temperature increased [None]
  - Hypotension [None]
  - Stevens-Johnson syndrome [None]
  - Lip oedema [None]
  - Pruritus [None]
  - Rash [None]
  - Syncope [None]
  - Nausea [None]
  - Oral discomfort [None]

NARRATIVE: CASE EVENT DATE: 20141104
